FAERS Safety Report 6233007 (Version 2)
Quarter: 2013Q4

REPORT INFORMATION
  Report Type: Spontaneous
  Country: GB (occurrence: GB)
  Receive Date: 20070207
  Receipt Date: 20131011
  Transmission Date: 20140711
  Serious: Yes (Death, Life-Threatening, Hospitalization, Disabling)
  Sender: FDA-Public Use
  Company Number: GB-JNJFOC-20070107588

PATIENT
  Age: 45 Year
  Sex: Female
  Weight: 100 kg

DRUGS (5)
  1. RISPERDAL CONSTA [Suspect]
     Indication: PSYCHOTIC DISORDER
     Route: 030
     Dates: start: 20050810, end: 20050908
  2. HALOPERIDOL [Suspect]
     Indication: PRODUCT USED FOR UNKNOWN INDICATION
     Route: 048
  3. RISPERIDONE [Suspect]
     Indication: DIGEORGE^S SYNDROME
     Route: 048
     Dates: start: 200509
  4. CLOPIXOL [Suspect]
     Indication: PSYCHOTIC DISORDER
     Route: 030
     Dates: start: 20050914, end: 20051030
  5. CLOPIXOL [Suspect]
     Indication: PSYCHOTIC DISORDER
     Route: 030
     Dates: start: 19981208

REACTIONS (4)
  - Myocarditis [Fatal]
  - Schizophrenia [Not Recovered/Not Resolved]
  - Chest pain [Unknown]
  - Off label use [Unknown]
